FAERS Safety Report 6976014-4 (Version None)
Quarter: 2010Q3

REPORT INFORMATION
  Report Type: 
  Country: None (occurrence: None)
  Receive Date: 20100910
  Receipt Date: 20100817
  Transmission Date: 20110219
  Serious: Yes (Hospitalization)
  Sender: FDA-Public Use
  Company Number: US-BAYER-201016350NA

PATIENT
  Age: 37 Year
  Sex: Female
  Weight: 125 kg

DRUGS (17)
  1. OCELLA [Suspect]
     Indication: POLYCYSTIC OVARIES
     Route: 048
     Dates: start: 20090831, end: 20091201
  2. YASMIN [Suspect]
     Indication: MENSTRUAL DISORDER
     Route: 048
     Dates: start: 20061207, end: 20090831
  3. KEFLEX [Concomitant]
  4. PRAVACHOL [Concomitant]
  5. ASPIRIN [Concomitant]
  6. IBUPROFEN [Concomitant]
  7. MIGRAINE MEDICATION [Concomitant]
  8. METFORMIN [Concomitant]
  9. FLUOXETINE [Concomitant]
  10. PRAVASTATIN [Concomitant]
  11. SPIRONOLACTONE [Concomitant]
  12. HYDROCHLOROTHIAZIDE [Concomitant]
  13. OMEPRAZOLE [Concomitant]
  14. LORTAB [Concomitant]
  15. LISINOPRIL [Concomitant]
  16. PROZAC [Concomitant]
  17. PRILOSEC [Concomitant]

REACTIONS (8)
  - ABDOMINAL PAIN [None]
  - CHOLECYSTITIS ACUTE [None]
  - CHOLELITHIASIS [None]
  - GASTRITIS [None]
  - HEPATIC FUNCTION ABNORMAL [None]
  - NAUSEA [None]
  - PANCREATITIS ACUTE [None]
  - URINARY TRACT INFECTION [None]
